FAERS Safety Report 10410271 (Version 1)
Quarter: 2014Q3

REPORT INFORMATION
  Report Type: Spontaneous
  Country: IT (occurrence: None)
  Receive Date: 20140708
  Receipt Date: 20140708
  Transmission Date: 20150326
  Serious: Yes (Hospitalization)
  Sender: FDA-Public Use
  Company Number: AUR-APL-2014-06175

PATIENT
  Sex: Female

DRUGS (1)
  1. SIMVASTATIN. [Suspect]
     Active Substance: SIMVASTATIN
     Indication: PRODUCT USED FOR UNKNOWN INDICATION

REACTIONS (5)
  - Blood lactate dehydrogenase increased [None]
  - Decreased appetite [None]
  - Blood creatine phosphokinase abnormal [None]
  - Transaminases increased [None]
  - Asthenia [None]

NARRATIVE: CASE EVENT DATE: 20140303
